FAERS Safety Report 24394319 (Version 1)
Quarter: 2024Q4

REPORT INFORMATION
  Report Type: Report from Study
  Country: BE (occurrence: BE)
  Receive Date: 20241004
  Receipt Date: 20241004
  Transmission Date: 20250115
  Serious: Yes (Death, Other)
  Sender: ABBVIE
  Company Number: BE-ABBVIE-5950003

PATIENT
  Age: 79 Year
  Sex: Female

DRUGS (17)
  1. CARBIDOPA\LEVODOPA [Suspect]
     Active Substance: CARBIDOPA\LEVODOPA
     Indication: Parkinson^s disease
     Dosage: CD: 2.2ML/H, ED: 1.50ML, DURING 24 HOURS
     Route: 050
     Dates: start: 20240426, end: 20240530
  2. CARBIDOPA\LEVODOPA [Suspect]
     Active Substance: CARBIDOPA\LEVODOPA
     Route: 050
     Dates: start: 20200527
  3. CARBIDOPA\LEVODOPA [Suspect]
     Active Substance: CARBIDOPA\LEVODOPA
     Dosage: CD: 2.8ML/H, ED: 1.50ML, DURING 24 HOURS
     Route: 050
     Dates: start: 20240530, end: 20240530
  4. CARBIDOPA\LEVODOPA [Suspect]
     Active Substance: CARBIDOPA\LEVODOPA
     Dosage: ED: 1.50ML, CND: 1.7ML/H DURING 24 HOURS
     Route: 050
     Dates: start: 20240530
  5. CARBIDOPA\LEVODOPA [Suspect]
     Active Substance: CARBIDOPA\LEVODOPA
     Dosage: MD: 3.0ML, CD: 1.5ML/H, DURING 24 HOURS
     Route: 050
     Dates: start: 20240114, end: 20240426
  6. BENSERAZIDE\LEVODOPA [Concomitant]
     Active Substance: BENSERAZIDE\LEVODOPA
     Indication: Product used for unknown indication
     Dosage: DOSE: 0.75 UNKNOWN FORM STRENGTH: 250 UNKNOWN FREQUENCY TEXT: AT 8AM,10AM, 2PM, 4PM, 6PM, 8PM
  7. BENSERAZIDE\LEVODOPA [Concomitant]
     Active Substance: BENSERAZIDE\LEVODOPA
     Indication: Product used for unknown indication
     Dosage: DOSE: 5 UNKNOWN FORM STRENGTH: 250 UNKNOWN FREQUENCY TEXT: AT 6 AM, 12 PM
  8. Pantomed [Concomitant]
     Indication: Product used for unknown indication
     Dosage: FORM STRENGTH: 40 UNKNOWN
  9. ASPIRIN [Concomitant]
     Active Substance: ASPIRIN
     Indication: Product used for unknown indication
     Dosage: FORM STRENGTH: 80 UNKNOWN
  10. MICARDIS [Concomitant]
     Active Substance: TELMISARTAN
     Indication: Product used for unknown indication
  11. BENSERAZIDE\LEVODOPA [Concomitant]
     Active Substance: BENSERAZIDE\LEVODOPA
     Indication: Product used for unknown indication
     Dosage: BEFORE DUODOPA: 0.5 TABLET IF NEEDED/ MAX 2 TABLETS/ 6H INTERVAL FORM STRENGTH: 125 UNKNOWN
  12. BENSERAZIDE\LEVODOPA [Concomitant]
     Active Substance: BENSERAZIDE\LEVODOPA
     Indication: Product used for unknown indication
     Dosage: SINCE DUODOPA: 0.5 TABLET FORM STRENGTH: 125 UNKNOWN FREQUENCY TEXT: AT 6 AM
  13. Apogo pen [Concomitant]
     Indication: Product used for unknown indication
     Dosage: 1 MG - MAX 10 MG/24 H - 20 MIN INTERVAL
  14. LORMETAZEPAM EFEKA [Concomitant]
     Indication: Product used for unknown indication
  15. EFFEXOR [Concomitant]
     Active Substance: VENLAFAXINE HYDROCHLORIDE
     Indication: Product used for unknown indication
  16. EFFEXOR [Concomitant]
     Active Substance: VENLAFAXINE HYDROCHLORIDE
     Indication: Product used for unknown indication
     Dosage: FREQUENCY : 0.5 DAYS
  17. AMANTADINE [Concomitant]
     Active Substance: AMANTADINE
     Indication: Product used for unknown indication
     Dosage: FREQUENCY TEXT: 0.5 DAY  FORM STRENGTH: 100 UNKNOWN

REACTIONS (2)
  - Death [Fatal]
  - Palliative care [Unknown]
